FAERS Safety Report 6039822-2 (Version None)
Quarter: 2009Q1

REPORT INFORMATION
  Report Type: 
  Country: None (occurrence: None)
  Receive Date: 20090116
  Receipt Date: 20090106
  Transmission Date: 20090719
  Serious: Yes (Hospitalization)
  Sender: FDA-Public Use
  Company Number: JP-JNJFOC-20071206291

PATIENT
  Sex: Male
  Weight: 56 kg

DRUGS (11)
  1. REMICADE [Suspect]
     Indication: CROHN'S DISEASE
     Route: 042
  2. PENTASA [Concomitant]
     Route: 048
  3. PENTASA [Concomitant]
     Indication: CROHN'S DISEASE
     Route: 048
  4. ELENTAL [Concomitant]
     Route: 051
  5. STEROIDS [Concomitant]
     Indication: CROHN'S DISEASE
  6. ANTIBIOTICS [Concomitant]
  7. WARFARIN SODIUM [Concomitant]
     Indication: THROMBOSIS
     Route: 048
  8. RISPERDAL [Concomitant]
     Indication: SCHIZOPHRENIA
     Route: 048
  9. AKINETON [Concomitant]
     Indication: SCHIZOPHRENIA
     Route: 048
  10. MYSLEE [Concomitant]
     Indication: SCHIZOPHRENIA
     Route: 048
  11. CLONAZEPAM [Concomitant]
     Indication: SCHIZOPHRENIA
     Route: 048

REACTIONS (3)
  - COLON CANCER [None]
  - ILEUS [None]
  - INTESTINAL OBSTRUCTION [None]
